FAERS Safety Report 6229315-1 (Version None)
Quarter: 2009Q2

REPORT INFORMATION
  Report Type: 
  Country: None (occurrence: None)
  Receive Date: 20090615
  Receipt Date: 20090527
  Transmission Date: 20091009
  Serious: Yes (Hospitalization, Other)
  Sender: FDA-Public Use
  Company Number: AU-AVENTIS-200914460GDDC

PATIENT
  Age: 60 Year
  Sex: Female
  Weight: 55 kg

DRUGS (7)
  1. ARAVA [Suspect]
     Dates: start: 20090302, end: 20090424
  2. CARDIPRIN                          /00002701/ [Concomitant]
     Dosage: DOSE: UNK
  3. PARIET [Concomitant]
     Dosage: DOSE: UNK
  4. AVAPRO [Concomitant]
     Dosage: DOSE: UNK
     Dates: start: 20090422
  5. FOLIC ACID [Concomitant]
  6. PREDNISONE [Concomitant]
  7. TIMOPTOL XE [Concomitant]
     Dosage: DOSE: 0.25%/ 1 DROP OU
     Route: 047

REACTIONS (4)
  - HEPATIC FUNCTION ABNORMAL [None]
  - HYPERTENSION [None]
  - NASAL ULCER [None]
  - WEIGHT DECREASED [None]
